FAERS Safety Report 13130141 (Version 1)
Quarter: 2017Q1

REPORT INFORMATION
  Report Type: Spontaneous
  Country: HK (occurrence: HK)
  Receive Date: 20170119
  Receipt Date: 20170119
  Transmission Date: 20170428
  Serious: Yes (Death, Hospitalization)
  Sender: FDA-Public Use
  Company Number: HK-BAYER-2016-212409

PATIENT
  Sex: Female

DRUGS (3)
  1. STIVARGA [Suspect]
     Active Substance: REGORAFENIB
     Indication: COLON CANCER METASTATIC
     Dosage: DAILY DOSE OF 40 MG
     Dates: start: 20161019, end: 201610
  2. STIVARGA [Suspect]
     Active Substance: REGORAFENIB
     Indication: COLON CANCER METASTATIC
     Dosage: 40 MG, DAILY DOSE
     Dates: start: 20160921, end: 201609
  3. STIVARGA [Suspect]
     Active Substance: REGORAFENIB
     Indication: COLON CANCER METASTATIC
     Dosage: 80 MG, DAILY DOSE
     Dates: start: 20160929, end: 201610

REACTIONS (11)
  - Fatigue [None]
  - Off label use [None]
  - Hepatic pain [Recovering/Resolving]
  - Nausea [None]
  - Adverse event [None]
  - Fatigue [None]
  - Hepatic function abnormal [None]
  - Pyrexia [None]
  - Pyrexia [None]
  - Death [Fatal]
  - Intentional product use issue [None]

NARRATIVE: CASE EVENT DATE: 2016
